FAERS Safety Report 22380584 (Version 1)
Quarter: 2023Q2

REPORT INFORMATION
  Report Type: Spontaneous
  Country: FR (occurrence: None)
  Receive Date: 20230529
  Receipt Date: 20230529
  Transmission Date: 20230722
  Serious: Yes (Other)
  Sender: FDA-Public Use
  Company Number: 2023A117614

PATIENT
  Age: 60 Year
  Sex: Male

DRUGS (1)
  1. FASENRA [Suspect]
     Active Substance: BENRALIZUMAB
     Indication: Asthma
     Route: 058
     Dates: start: 20221014, end: 20230329

REACTIONS (1)
  - Polyneuropathy [Recovering/Resolving]

NARRATIVE: CASE EVENT DATE: 20221201
